FAERS Safety Report 19619548 (Version 2)
Quarter: 2024Q2

REPORT INFORMATION
  Report Type: Spontaneous
  Country: US (occurrence: US)
  Receive Date: 20210727
  Receipt Date: 20240412
  Transmission Date: 20240716
  Serious: Yes (Other)
  Sender: FDA-Public Use
  Company Number: US-ENDO PHARMACEUTICALS INC-2021-008386

PATIENT
  Age: 53 Year
  Sex: Male

DRUGS (2)
  1. RANITIDINE HYDROCHLORIDE [Suspect]
     Active Substance: RANITIDINE HYDROCHLORIDE
     Indication: Dyspepsia
     Dosage: 150 MG, DAILY
     Route: 065
     Dates: start: 200401, end: 202008
  2. RANITIDINE [Suspect]
     Active Substance: RANITIDINE
     Indication: Dyspepsia
     Dosage: 150 MG, DAILY
     Route: 065
     Dates: start: 200401, end: 202008

REACTIONS (1)
  - Renal cancer stage I [Recovering/Resolving]

NARRATIVE: CASE EVENT DATE: 20140101
